FAERS Safety Report 4424644-6 (Version None)
Quarter: 2004Q3

REPORT INFORMATION
  Report Type: 
  Country: None (occurrence: None)
  Receive Date: 20040809
  Receipt Date: 20040727
  Transmission Date: 20050211
  Serious: Yes (Hospitalization)
  Sender: FDA-Public Use
  Company Number: 04P-087-0267208-00

PATIENT
  Age: 72 Year
  Sex: Male
  Weight: 61 kg

DRUGS (9)
  1. BIAXIN [Suspect]
     Indication: PNEUMONIA
     Dosage: 400 MG, 1 IN 1 D, PER ORAL
     Route: 048
     Dates: start: 20040705, end: 20040711
  2. CEFDITOREN PIVOXIL [Concomitant]
  3. TELITHROMYCIN [Concomitant]
  4. FOMINOBEN HYDROCHLORIDE [Concomitant]
  5. THEOPHYLLINE [Concomitant]
  6. CLENBUTEROL HYDROCHLORIDE [Concomitant]
  7. HUSCODE [Concomitant]
  8. PHYSI035 [Concomitant]
  9. B-KOMPLEX      LECIVA [Concomitant]

REACTIONS (1)
  - CRYPTOGENIC ORGANIZING PNEUMONIA [None]
